FAERS Safety Report 7688845-6 (Version None)
Quarter: 2011Q3

REPORT INFORMATION
  Report Type: 
  Country: None (occurrence: None)
  Receive Date: 20110817
  Receipt Date: 20110808
  Transmission Date: 20111222
  Serious: Yes (Hospitalization, Other)
  Sender: FDA-Public Use
  Company Number: PHHY2009GB29558

PATIENT
  Sex: Male

DRUGS (3)
  1. PAROXETINE HCL [Concomitant]
     Indication: DEPRESSION
     Dosage: 20 MG/DAY
     Route: 048
  2. CLOZAPINE [Suspect]
     Indication: SCHIZOPHRENIA
     Dosage: 150 MG/DAY
     Route: 048
     Dates: start: 19980915
  3. FLUOXETINE [Concomitant]
     Dosage: 40 MG/DAY

REACTIONS (8)
  - INTERSTITIAL LUNG DISEASE [None]
  - NEUTROPHIL COUNT INCREASED [None]
  - PLATELET COUNT INCREASED [None]
  - DYSPNOEA [None]
  - EMPHYSEMA [None]
  - INJECTION SITE HAEMATOMA [None]
  - WHITE BLOOD CELL COUNT INCREASED [None]
  - PLATELET COUNT DECREASED [None]
